FAERS Safety Report 16148849 (Version 1)
Quarter: 2019Q2

REPORT INFORMATION
  Report Type: Spontaneous
  Country: CA (occurrence: CA)
  Receive Date: 20190402
  Receipt Date: 20190402
  Transmission Date: 20190711
  Serious: Yes (Death)
  Sender: FDA-Public Use
  Company Number: CA-PFIZER INC-2019133468

PATIENT
  Sex: Male

DRUGS (2)
  1. SERTRALINE HCL [Suspect]
     Active Substance: SERTRALINE HYDROCHLORIDE
     Dosage: 100 MG, 1X/DAY
     Route: 064
  2. DALTEPARINE SODIQUE [Concomitant]
     Dosage: 5000 UNITS, 1X/DAY
     Route: 064

REACTIONS (2)
  - Renal aplasia [Fatal]
  - Exposure during pregnancy [Fatal]
